FAERS Safety Report 4353903-0 (Version None)
Quarter: 2004Q2

REPORT INFORMATION
  Report Type: 
  Country: None (occurrence: None)
  Receive Date: 20040506
  Receipt Date: 20040405
  Transmission Date: 20050107
  Serious: Yes (Hospitalization, Other)
  Sender: FDA-Public Use
  Company Number: PHFR2004GB01691

PATIENT
  Age: 36 Year
  Sex: Female

DRUGS (11)
  1. CLOZARIL [Suspect]
     Indication: SCHIZOPHRENIA
     Dosage: 150MG MORN + 175MG NIGHT
     Route: 048
     Dates: start: 20040308
  2. DEPAKOTE [Concomitant]
     Dosage: 750 MG, BID
     Route: 048
  3. LACTULOSE [Concomitant]
     Dosage: 15 ML NOCTE
     Route: 048
  4. FYBOGEL [Concomitant]
     Dosage: 1 TABLET NOCTE
     Route: 048
  5. RISPERIDONE [Concomitant]
     Dosage: 4 MG MANE
     Route: 048
  6. RISPERIDONE [Concomitant]
     Dosage: 2 MG, BID
     Route: 048
  7. PARACETAMOL [Concomitant]
     Indication: PAIN
  8. VENTOLIN [Concomitant]
     Dosage: 2 PUFFS BID
  9. PROCYCLIDINE HYDROCHLORIDE 2MG TAB [Concomitant]
     Dosage: 5 MG, BID
     Route: 048
  10. IBUPROFEN [Concomitant]
     Dosage: UP TO 4 TIMES
     Route: 061
  11. KWELLS [Concomitant]
     Dosage: 2 TABLETS, BID
     Route: 048

REACTIONS (26)
  - BLOOD ALBUMIN DECREASED [None]
  - BLOOD ALKALINE PHOSPHATASE INCREASED [None]
  - BLOOD BICARBONATE INCREASED [None]
  - BLOOD CALCIUM DECREASED [None]
  - BLOOD POTASSIUM DECREASED [None]
  - BLOOD SODIUM DECREASED [None]
  - BLOOD UREA DECREASED [None]
  - BODY TEMPERATURE INCREASED [None]
  - CARDIAC FAILURE [None]
  - COUGH [None]
  - DIARRHOEA [None]
  - FACE OEDEMA [None]
  - HAEMATOCRIT DECREASED [None]
  - HAEMOGLOBIN DECREASED [None]
  - LOWER RESPIRATORY TRACT INFECTION [None]
  - MALAISE [None]
  - NASOPHARYNGITIS [None]
  - NEUTROPHIL TOXIC GRANULATION PRESENT [None]
  - NEUTROPHILIA [None]
  - OEDEMA PERIPHERAL [None]
  - PLATELET COUNT INCREASED [None]
  - PROTEIN TOTAL DECREASED [None]
  - RASH [None]
  - TACHYCARDIA [None]
  - URINARY TRACT INFECTION [None]
  - WHITE BLOOD CELL COUNT INCREASED [None]
